FAERS Safety Report 8031795-6 (Version None)
Quarter: 2012Q1

REPORT INFORMATION
  Report Type: 
  Country: None (occurrence: None)
  Receive Date: 20120109
  Receipt Date: 20120105
  Transmission Date: 20120608
  Serious: Yes (Death)
  Sender: FDA-Public Use
  Company Number: PHHY2012MX001170

PATIENT
  Sex: Male

DRUGS (3)
  1. CRESTOR [Concomitant]
  2. GLIMETAL [Concomitant]
  3. TRILEPTAL [Suspect]
     Indication: EPILEPSY
     Dosage: UNK
     Dates: start: 20021201, end: 20111001

REACTIONS (1)
  - CARDIAC ARREST [None]
